FAERS Safety Report 6500789-1 (Version None)
Quarter: 2009Q4

REPORT INFORMATION
  Report Type: 
  Country: None (occurrence: None)
  Receive Date: 20091216
  Receipt Date: 20090323
  Transmission Date: 20100525
  Serious: No
  Sender: FDA-Public Use
  Company Number: A0770381A

PATIENT
  Age: 74 Year
  Sex: Female

DRUGS (1)
  1. COMMIT [Suspect]
     Dates: start: 20090124

REACTIONS (2)
  - PRODUCT QUALITY ISSUE [None]
  - SALIVARY HYPERSECRETION [None]
